FAERS Safety Report 6897194-5 (Version None)
Quarter: 2010Q3

REPORT INFORMATION
  Report Type: 
  Country: None (occurrence: None)
  Receive Date: 20100802
  Receipt Date: 20070424
  Transmission Date: 20110219
  Serious: Yes (Other)
  Sender: FDA-Public Use
  Company Number: US-PFIZER INC-2007033783

PATIENT
  Sex: Male
  Weight: 86.363 kg

DRUGS (7)
  1. LYRICA [Suspect]
     Indication: NEUROPATHY PERIPHERAL
     Dates: start: 20060601
  2. LYRICA [Suspect]
     Indication: PARAESTHESIA
  3. LYRICA [Suspect]
     Indication: CONVULSION
  4. NEURONTIN [Suspect]
     Indication: NEUROPATHY PERIPHERAL
  5. NEURONTIN [Suspect]
     Indication: PARAESTHESIA
  6. NEURONTIN [Suspect]
     Indication: CONVULSION
  7. PREVACID [Concomitant]

REACTIONS (4)
  - DRUG INEFFECTIVE [None]
  - GENERALISED OEDEMA [None]
  - OEDEMA PERIPHERAL [None]
  - PAIN IN EXTREMITY [None]
